FAERS Safety Report 18947762 (Version 1)
Quarter: 2021Q1

REPORT INFORMATION
  Report Type: Report from Study
  Country: US (occurrence: US)
  Receive Date: 20210226
  Receipt Date: 20210226
  Transmission Date: 20210420
  Serious: Yes (Hospitalization, Other)
  Sender: FDA-Public Use
  Company Number: US-NAPPMUNDI-USA-2014-0115204

PATIENT
  Sex: Male

DRUGS (3)
  1. OXYCODONE HYDROCHLORIDE. [Suspect]
     Active Substance: OXYCODONE HYDROCHLORIDE
     Indication: INTERVERTEBRAL DISC DISORDER
     Dosage: UNK
     Route: 048
     Dates: start: 2003
  2. OXYCODONE HYDROCHLORIDE. [Suspect]
     Active Substance: OXYCODONE HYDROCHLORIDE
     Indication: PAIN
     Dosage: 80 MG, BID
     Route: 048
     Dates: start: 2003, end: 202101
  3. PROCAINE /00083402/ [Suspect]
     Active Substance: PROCAINE HYDROCHLORIDE
     Indication: PRODUCT USED FOR UNKNOWN INDICATION
     Route: 065

REACTIONS (7)
  - Drug dependence [Not Recovered/Not Resolved]
  - Unevaluable event [Unknown]
  - Inadequate analgesia [Not Recovered/Not Resolved]
  - Bacterial infection [Unknown]
  - Pain [Unknown]
  - Depression [Unknown]
  - Feeling abnormal [Unknown]
